FAERS Safety Report 6620051-6 (Version None)
Quarter: 2010Q1

REPORT INFORMATION
  Report Type: 
  Country: None (occurrence: None)
  Receive Date: 20100309
  Receipt Date: 20100225
  Transmission Date: 20100710
  Serious: Yes (Hospitalization)
  Sender: FDA-Public Use
  Company Number: SG-ROCHE-445668

PATIENT
  Sex: Male
  Weight: 57.5 kg

DRUGS (4)
  1. BEVACIZUMAB [Suspect]
     Dosage: FORM: LIQUID
     Route: 042
     Dates: start: 20051017, end: 20060405
  2. OXALIPLATIN [Suspect]
     Dosage: FORM: LIQUID
     Route: 042
     Dates: start: 20051017, end: 20060405
  3. 5-FU [Suspect]
     Route: 042
     Dates: start: 20051017, end: 20060406
  4. FERROUS FUMARATE [Concomitant]
     Dates: start: 20050405

REACTIONS (1)
  - BRONCHOPULMONARY ASPERGILLOSIS [None]
